FAERS Safety Report 8258615-9 (Version None)
Quarter: 2012Q2

REPORT INFORMATION
  Report Type: 
  Country: None (occurrence: None)
  Receive Date: 20120404
  Receipt Date: 20120326
  Transmission Date: 20120825
  Serious: Yes (Hospitalization)
  Sender: FDA-Public Use
  Company Number: US-BRISTOL-MYERS SQUIBB COMPANY-15475213

PATIENT
  Age: 70 Year
  Sex: Female
  Weight: 65 kg

DRUGS (28)
  1. CARBOPLATIN [Suspect]
     Indication: NON-SMALL CELL LUNG CANCER
     Dosage: INTERRUPTED ON 14DEC2010(49D); NO OF INF:3 DISCONTINUED ON 13JAN11
     Route: 042
     Dates: start: 20101026
  2. OXYGEN [Concomitant]
     Indication: EMPHYSEMA
     Dosage: VIA NASAL CANNULA
     Route: 055
  3. ADVAIR DISKUS 100/50 [Concomitant]
     Indication: EMPHYSEMA
     Dosage: 1DF:250/50 ONE DOSE
     Route: 055
  4. OMEGA 3 FATTY ACID [Concomitant]
     Indication: MEDICAL DIET
     Route: 048
     Dates: start: 20000101
  5. MULTI-VITAMINS [Concomitant]
     Indication: MEDICAL DIET
     Route: 048
     Dates: start: 20000101
  6. ASPIRIN [Concomitant]
     Indication: PROPHYLAXIS
     Route: 048
  7. MAGNESIUM OXIDE [Concomitant]
     Indication: MEDICAL DIET
     Route: 048
     Dates: start: 20101123
  8. PREDNISONE TAB [Concomitant]
     Route: 065
  9. ALBUTEROL [Concomitant]
     Indication: CHRONIC OBSTRUCTIVE PULMONARY DISEASE
     Route: 065
  10. COMPAZINE [Concomitant]
     Dates: start: 20101026
  11. ERBITUX [Suspect]
     Indication: NON-SMALL CELL LUNG CANCER
     Dosage: INTERRUPTED ON 21DEC2010(56D);RECENT INF:21DEC2010; NO OF INF:8 DISCONTINUED ON 13JAN11
     Route: 042
     Dates: start: 20101026
  12. VITAMIN B-12 [Concomitant]
     Indication: MEDICAL DIET
     Dosage: 15.873MG
     Route: 058
     Dates: start: 20101021
  13. COLACE [Concomitant]
  14. DECADRON [Concomitant]
     Indication: PREMEDICATION
     Dosage: 4MG DAY BEFORE AND AFTER CHEMO
     Route: 048
     Dates: start: 20101025
  15. EXTRA STRENGTH TYLENOL [Concomitant]
     Indication: BACK PAIN
     Dosage: 1DF:2 TABS EVERY 4 HOURS
     Route: 048
  16. NEUPOGEN [Concomitant]
  17. LISINOPRIL AND HYDROCHLOROTHIAZIDE [Concomitant]
  18. CALCIUM CARBONATE [Concomitant]
     Indication: MEDICAL DIET
     Dosage: OS CAL 1800MG
     Route: 048
  19. FOLIC ACID [Concomitant]
     Indication: MEDICAL DIET
     Route: 048
     Dates: start: 20101021
  20. DUONEB [Concomitant]
     Indication: CHRONIC OBSTRUCTIVE PULMONARY DISEASE
     Route: 055
  21. METOPROLOL SUCCINATE [Concomitant]
     Indication: HYPERTENSION
     Route: 048
     Dates: start: 20101203
  22. FISH OIL [Concomitant]
     Dates: start: 20000101
  23. LEVAQUIN [Concomitant]
     Indication: INFECTION
     Route: 065
  24. ATIVAN [Concomitant]
     Indication: NAUSEA
     Dosage: 1DF:0.5-1MG EVERY 4 HOURS
     Route: 048
     Dates: start: 20101026
  25. ALIMTA [Suspect]
     Indication: NON-SMALL CELL LUNG CANCER
     Dosage: INTERRUPTED ON 14DEC2010(49D); NO OF INF:3 DISCONTINUED ON 13JAN11
     Route: 042
     Dates: start: 20101026
  26. SENOKOT [Concomitant]
     Indication: CONSTIPATION
     Dosage: 1DF:2TABS EVERY MORNING STARTED ABOUT 2YEARS AGO
     Route: 048
  27. SPIRIVA [Concomitant]
     Indication: CHRONIC OBSTRUCTIVE PULMONARY DISEASE
     Dosage: 1DF: ONE DOSE
     Route: 055
  28. PROCHLORPERAZINE [Concomitant]
     Indication: NAUSEA
     Dosage: EVERY 4-6 HOURS
     Route: 048
     Dates: start: 20101026

REACTIONS (1)
  - DYSPNOEA [None]
